FAERS Safety Report 4668202-7 (Version None)
Quarter: 2005Q2

REPORT INFORMATION
  Report Type: 
  Country: None (occurrence: None)
  Receive Date: 20050523
  Receipt Date: 20041027
  Transmission Date: 20051028
  Serious: Yes (Other)
  Sender: FDA-Public Use
  Company Number: PHEH2004US11635

PATIENT
  Age: 76 Year
  Sex: Male

DRUGS (7)
  1. HYTRIN [Concomitant]
     Dosage: 5 MG, QD
  2. THALIDOMIDE [Concomitant]
     Dosage: 100 MG, QD
  3. K-DUR 10 [Concomitant]
     Dosage: 10 MEQ, TID
  4. PREDNISONE [Concomitant]
     Dosage: 50 MG, QOD
  5. PREDNISONE [Concomitant]
     Dosage: 10 MG, QOD
  6. NEXIUM [Concomitant]
     Dosage: 40 MG, QD
  7. PAMIDRONATE DISODIUM [Suspect]

REACTIONS (3)
  - ASEPTIC NECROSIS BONE [None]
  - BONE DISORDER [None]
  - TOOTH EXTRACTION [None]
